FAERS Safety Report 5391209-1 (Version None)
Quarter: 2007Q3

REPORT INFORMATION
  Report Type: 
  Country: None (occurrence: None)
  Receive Date: 20070717
  Receipt Date: 20070706
  Transmission Date: 20080115
  Serious: Yes (Hospitalization, Other)
  Sender: FDA-Public Use
  Company Number: 163-21880-07060624

PATIENT
  Age: 76 Year
  Sex: Male

DRUGS (7)
  1. REVLIMID [Suspect]
     Indication: MYELODYSPLASTIC SYNDROME
     Dosage: 10 MG, 1 IN 1 D, ORAL
     Route: 048
     Dates: start: 20070212, end: 20070301
  2. MUCINEX [Concomitant]
  3. ASPIRIN [Concomitant]
  4. FLEXERIL [Concomitant]
  5. HYDROCODONE (HYDROCODONE) [Concomitant]
  6. PACKED RED BLOOD CELLS (BLOOD CELLS, PACKED HUMAN) [Concomitant]
  7. PROCRIT [Concomitant]

REACTIONS (12)
  - BRONCHITIS [None]
  - CHEST PAIN [None]
  - CONFUSIONAL STATE [None]
  - HAEMOGLOBIN DECREASED [None]
  - HEADACHE [None]
  - MENTAL STATUS CHANGES [None]
  - METABOLIC ENCEPHALOPATHY [None]
  - MYALGIA [None]
  - NECK PAIN [None]
  - NEUTROPHIL PERCENTAGE DECREASED [None]
  - PLATELET COUNT DECREASED [None]
  - TOXIC ENCEPHALOPATHY [None]
